FAERS Safety Report 10649211 (Version 1)
Quarter: 2014Q4

REPORT INFORMATION
  Report Type: Spontaneous
  Country: US (occurrence: None)
  Receive Date: 20141205
  Receipt Date: 20141205
  Transmission Date: 20150529
  Serious: No
  Sender: FDA-Public Use
  Company Number: 163-POMAL-14092050

PATIENT
  Age: 53 Year
  Sex: Female
  Weight: 43.55 kg

DRUGS (3)
  1. VITAMIN D(ERGOCALCIFEROL) [Concomitant]
  2. POMALYST [Suspect]
     Active Substance: POMALIDOMIDE
     Indication: PLASMA CELL MYELOMA
     Dates: start: 201303, end: 2014
  3. DEXAMETHASONE(DEXAMETHASONE) [Concomitant]

REACTIONS (4)
  - Hair texture abnormal [None]
  - Tumour marker increased [None]
  - Hair colour changes [None]
  - Drug ineffective [None]
